FAERS Safety Report 9460625 (Version 1)
Quarter: 2013Q3

REPORT INFORMATION
  Report Type: Spontaneous
  Country: DE (occurrence: DE)
  Receive Date: 20130815
  Receipt Date: 20130815
  Transmission Date: 20140515
  Serious: Yes (Hospitalization, Other)
  Sender: FDA-Public Use
  Company Number: GXKR2013DE002696

PATIENT
  Age: 1 Day
  Sex: Male
  Weight: 3.26 kg

DRUGS (2)
  1. CITALOPRAM [Suspect]
     Dosage: MATERNAL DOSE (0.-37.2 GESTATIONAL WEEK): 60MG/DAY
     Route: 064
  2. QUETIAPINE [Suspect]
     Dosage: MATERNAL DOSE (0.-37.2 GESTATIONAL WEEK): 600MG/DAY
     Route: 064

REACTIONS (4)
  - Agitation neonatal [Recovering/Resolving]
  - Neonatal respiratory distress syndrome [Recovered/Resolved]
  - Oxygen saturation decreased [Recovered/Resolved]
  - Foetal exposure during pregnancy [Unknown]
